FAERS Safety Report 6699944-X (Version None)
Quarter: 2010Q2

REPORT INFORMATION
  Report Type: 
  Country: None (occurrence: None)
  Receive Date: 20100428
  Receipt Date: 20100415
  Transmission Date: 20101027
  Serious: Yes (Hospitalization, Other)
  Sender: FDA-Public Use
  Company Number: PHHO2010US00929

PATIENT
  Sex: Male
  Weight: 86.2 kg

DRUGS (3)
  1. BLINDED ACZ885 ACZ+SOLINF+COPD [Suspect]
     Dosage: DOUBLE-BLIND
     Route: 042
     Dates: start: 20081216, end: 20100111
  2. BLINDED NO TREATMENT RECEIVED NOMED [Suspect]
     Dosage: DOUBLE-BLIND
     Route: 042
     Dates: start: 20081216, end: 20100111
  3. BLINDED PLACEBO COMP-PLA+ [Suspect]
     Dosage: DOUBLE-BLIND
     Route: 042
     Dates: start: 20081216, end: 20100111

REACTIONS (3)
  - CONCOMITANT DISEASE PROGRESSION [None]
  - NEPHRECTOMY [None]
  - URETERIC CANCER [None]
